FAERS Safety Report 20784754 (Version 2)
Quarter: 2022Q4

REPORT INFORMATION
  Report Type: Report from Study
  Country: US (occurrence: US)
  Receive Date: 20220504
  Receipt Date: 20221216
  Transmission Date: 20230112
  Serious: Yes (Hospitalization, Other)
  Sender: FDA-Public Use
  Company Number: US-BAUSCH-BL-2022-010761

PATIENT
  Age: 75 Year
  Sex: Male
  Weight: 76.7 kg

DRUGS (20)
  1. XIFAXAN [Suspect]
     Active Substance: RIFAXIMIN
     Indication: Hepatic encephalopathy
     Route: 048
     Dates: end: 20220228
  2. XIFAXAN [Suspect]
     Active Substance: RIFAXIMIN
     Dosage: START DATE: 28/FEB/2022
     Route: 048
     Dates: start: 20220228
  3. LACTULOSE [Suspect]
     Active Substance: LACTULOSE
     Indication: Hepatic encephalopathy
     Dosage: 10 CC DAILY
     Route: 065
  4. DIAMOX SEQUELS [Concomitant]
     Active Substance: ACETAZOLAMIDE
     Indication: Product used for unknown indication
     Dosage: DIAMOX. DAILY.
     Route: 048
     Dates: start: 20190530
  5. AMOXIL [Concomitant]
     Active Substance: AMOXICILLIN
     Indication: Product used for unknown indication
     Dosage: AMOXIL. TAKE 2000 MG BY MOUTH PRIOR TO DENTAL WORK.
     Route: 048
     Dates: start: 20201030
  6. VITAMIN C [Concomitant]
     Active Substance: ASCORBIC ACID
     Indication: Product used for unknown indication
     Dosage: VITAMIN C. 1000 MG DAILY
     Route: 048
     Dates: start: 20121105
  7. CALTRATE [Concomitant]
     Active Substance: CALCIUM CARBONATE
     Indication: Product used for unknown indication
     Dosage: CALTRATE 600. 600 MG (1,500 MG) DAILY
     Route: 048
     Dates: start: 20141027
  8. ARICEPT [Concomitant]
     Active Substance: DONEPEZIL HYDROCHLORIDE
     Indication: Product used for unknown indication
     Dosage: START WITH 1/2 TAB (5 MG) BY MOUTH DAILY FOR 1 MONTH AND THEN TAKE 1 FULL TBL (10 MG) DAILY
     Route: 048
     Dates: start: 20211207
  9. FERROUS SULFATE [Concomitant]
     Active Substance: FERROUS SULFATE
     Indication: Product used for unknown indication
     Dosage: FERROUS SULFATE 325 MG (65 MG IRON)
     Route: 048
     Dates: start: 20121105
  10. LEVAQUIN [Concomitant]
     Active Substance: LEVOFLOXACIN
     Indication: Product used for unknown indication
     Route: 048
  11. REMERON [Concomitant]
     Active Substance: MIRTAZAPINE
     Indication: Product used for unknown indication
     Dosage: AT BEDTIME
     Route: 048
  12. PROTONIX [Concomitant]
     Active Substance: PANTOPRAZOLE SODIUM
     Indication: Product used for unknown indication
     Dosage: PROTONIX
     Route: 048
     Dates: start: 20121105
  13. VEETIDS [Concomitant]
     Active Substance: PENICILLIN V POTASSIUM
     Indication: Product used for unknown indication
     Dosage: VEETID. AT BEDTIME.
     Route: 048
  14. ALDACTONE [Concomitant]
     Active Substance: SPIRONOLACTONE
     Indication: Product used for unknown indication
     Dosage: ALDACTONE.
     Route: 048
  15. ZINC GLUCONATE [Concomitant]
     Active Substance: ZINC GLUCONATE
     Indication: Product used for unknown indication
     Dosage: ALDACTONE. 50 MG BY MOUTH DAILY.
     Route: 048
  16. ARANESP [Concomitant]
     Active Substance: DARBEPOETIN ALFA
     Indication: Product used for unknown indication
     Dosage: ARANESP, N POLYSORSATE, INJ, UNSURE OF DOSAGE
  17. DULCOLAX NOS [Concomitant]
     Active Substance: BISACODYL OR DOCUSATE SODIUM
     Indication: Product used for unknown indication
     Dosage: DULCOLAX EC
     Route: 048
     Dates: start: 20220913
  18. OSCAL [Concomitant]
     Active Substance: CALCIUM CARBONATE
     Indication: Product used for unknown indication
     Dosage: 600 MG CALCIUM (1,500 MG) DAILY
     Route: 048
     Dates: start: 20141027
  19. TWINRIX [Concomitant]
     Active Substance: HEPATITIS A VIRUS STRAIN HM175 ANTIGEN (FORMALDEHYDE INACTIVATED)\HEPATITIS B VIRUS SUBTYPE ADW2 HBS
     Indication: Product used for unknown indication
     Dosage: TWINRIX, VACCINE PF 720 ELISA UNIT 20 MCG/ML, SYRINGE, GIVE FIRST DOSE NOW AND REPEAT 1 IN 6 MONTHS
     Route: 030
     Dates: start: 20220919
  20. MIRALAX [Concomitant]
     Active Substance: POLYETHYLENE GLYCOL 3350
     Indication: Product used for unknown indication
     Dosage: 17 GRAM/DOSE
     Route: 048
     Dates: start: 20220913

REACTIONS (10)
  - Hospitalisation [Unknown]
  - Cryptogenic cirrhosis [Unknown]
  - Spontaneous bacterial peritonitis [Unknown]
  - Mental impairment [Unknown]
  - Hypersomnia [Not Recovered/Not Resolved]
  - Communication disorder [Not Recovered/Not Resolved]
  - Abdominal distension [Not Recovered/Not Resolved]
  - Asthenia [Unknown]
  - Somnolence [Not Recovered/Not Resolved]
  - Diarrhoea [Unknown]

NARRATIVE: CASE EVENT DATE: 20220101
